FAERS Safety Report 16016281 (Version 1)
Quarter: 2019Q1

REPORT INFORMATION
  Report Type: Spontaneous
  Country: DE (occurrence: DE)
  Receive Date: 20190228
  Receipt Date: 20190228
  Transmission Date: 20190418
  Serious: Yes (Hospitalization)
  Sender: FDA-Public Use
  Company Number: DE-TEVA-2019-DE-1017506

PATIENT

DRUGS (2)
  1. BATRAFEN [Concomitant]
     Indication: FUNGAL SKIN INFECTION
     Dosage: 1-0-0
     Route: 050
  2. BACLOFEN. [Suspect]
     Active Substance: BACLOFEN
     Dosage: ADMINISTERED ONCE (50 MG TOTAL - FIVE 10MG TABLETS ADMINISTERED)
     Route: 048

REACTIONS (7)
  - Product name confusion [Recovered/Resolved]
  - Gait disturbance [Recovered/Resolved]
  - Depressed level of consciousness [Recovered/Resolved]
  - Accidental overdose [Recovered/Resolved]
  - Product prescribing issue [Recovered/Resolved]
  - Hypotonia [Recovered/Resolved]
  - Wrong product administered [Recovered/Resolved]
